FAERS Safety Report 23864971 (Version 2)
Quarter: 2024Q2

REPORT INFORMATION
  Report Type: Report from Study
  Country: US (occurrence: US)
  Receive Date: 20240516
  Receipt Date: 20240611
  Transmission Date: 20240716
  Serious: Yes (Hospitalization)
  Sender: FDA-Public Use
  Company Number: US-ABBVIE-5763620

PATIENT
  Sex: Male

DRUGS (2)
  1. RINVOQ [Suspect]
     Active Substance: UPADACITINIB
     Indication: Crohn^s disease
     Dosage: STRENGTH: 45MG?TITRATION DOSING: 45MG ONE TABLET BY MOUTH ONE TIME A DAY FOR 12 WEEKS.
     Route: 048
     Dates: start: 202403, end: 202403
  2. RINVOQ [Suspect]
     Active Substance: UPADACITINIB
     Indication: Crohn^s disease
     Dosage: STRENGTH: 45MG?TITRATION DOSING: 45MG ONE TABLET BY MOUTH ONE TIME A DAY FOR 12 WEEKS.
     Route: 048
     Dates: start: 20240306

REACTIONS (4)
  - Respiratory tract infection [Not Recovered/Not Resolved]
  - Haematochezia [Unknown]
  - Dyspnoea [Unknown]
  - Pneumonia [Recovered/Resolved]

NARRATIVE: CASE EVENT DATE: 20240101
